FAERS Safety Report 19853699 (Version 1)
Quarter: 2021Q3

REPORT INFORMATION
  Report Type: Report from Study
  Country: None (occurrence: CO)
  Receive Date: 20210919
  Receipt Date: 20210919
  Transmission Date: 20211014
  Serious: Yes (Hospitalization)
  Sender: FDA-Public Use
  Company Number: CO-ABBVIE-21K-036-4084602-00

PATIENT
  Sex: Male
  Weight: 68 kg

DRUGS (1)
  1. VENCLEXTA [Suspect]
     Active Substance: VENETOCLAX
     Indication: CHRONIC LYMPHOCYTIC LEUKAEMIA
     Route: 048
     Dates: start: 20210716

REACTIONS (7)
  - Cyst [Recovering/Resolving]
  - Pyrexia [Recovering/Resolving]
  - Prostatitis [Recovering/Resolving]
  - Decreased appetite [Not Recovered/Not Resolved]
  - Oropharyngeal pain [Recovered/Resolved]
  - Urinary tract infection [Recovering/Resolving]
  - Nausea [Not Recovered/Not Resolved]

NARRATIVE: CASE EVENT DATE: 2021
